FAERS Safety Report 9947344 (Version 1)
Quarter: 2014Q1

REPORT INFORMATION
  Report Type: Report from Study
  Country: US (occurrence: US)
  Receive Date: 20140303
  Receipt Date: 20140303
  Transmission Date: 20141002
  Serious: No
  Sender: FDA-Public Use
  Company Number: US-ABBVIE-13P-163-1059841-00

PATIENT
  Age: 37 Year
  Sex: Male

DRUGS (3)
  1. HUMIRA [Suspect]
     Indication: CROHN^S DISEASE
     Dates: start: 200910
  2. LISINOPRIL HCTZ [Concomitant]
     Indication: HYPERTENSION
     Dosage: 20/25 MG DAILY
  3. PROBIOTIC [Concomitant]
     Indication: PRODUCT USED FOR UNKNOWN INDICATION
     Dosage: DAILY

REACTIONS (2)
  - Drug dose omission [Not Recovered/Not Resolved]
  - Device malfunction [Not Recovered/Not Resolved]
